FAERS Safety Report 9358638 (Version 1)
Quarter: 2013Q2

REPORT INFORMATION
  Report Type: Spontaneous
  Country: US (occurrence: US)
  Receive Date: 20130620
  Receipt Date: 20130620
  Transmission Date: 20140414
  Serious: Yes (Death)
  Sender: FDA-Public Use
  Company Number: US-GLAXOSMITHKLINE-A1027469A

PATIENT
  Sex: Female

DRUGS (6)
  1. VOTRIENT [Suspect]
     Indication: ENDOMETRIAL CANCER
     Dosage: 600MG PER DAY
     Route: 048
  2. PHENERGAN [Concomitant]
  3. XANAX [Concomitant]
  4. REMERON [Concomitant]
  5. VICOPROFEN [Concomitant]
  6. ZOFRAN [Concomitant]

REACTIONS (1)
  - Death [Fatal]
